FAERS Safety Report 25906742 (Version 2)
Quarter: 2025Q4

REPORT INFORMATION
  Report Type: Spontaneous
  Country: US (occurrence: US)
  Receive Date: 20251010
  Receipt Date: 20251022
  Transmission Date: 20260118
  Serious: Yes (Hospitalization)
  Sender: PFIZER
  Company Number: US-PFIZER INC-202500200091

PATIENT
  Sex: Female

DRUGS (3)
  1. FENTANYL CITRATE [Suspect]
     Active Substance: FENTANYL CITRATE
     Indication: Pain
     Dosage: 31.2 MCG/HOUR
     Route: 037
  2. BUPIVACAINE HYDROCHLORIDE [Suspect]
     Active Substance: BUPIVACAINE HYDROCHLORIDE
     Indication: Pain
     Dosage: 0.31 MG/HOUR
     Route: 037
  3. INSULIN NOS [Suspect]
     Active Substance: INSULIN NOS
     Dosage: VIA AN EXTERNAL PUMP

REACTIONS (4)
  - Abdominal pain [Unknown]
  - Constipation [Unknown]
  - Somnolence [Unknown]
  - Off label use [Unknown]
